FAERS Safety Report 22301141 (Version 3)
Quarter: 2024Q3

REPORT INFORMATION
  Report Type: Spontaneous
  Country: US (occurrence: US)
  Receive Date: 20230509
  Receipt Date: 20240917
  Transmission Date: 20241016
  Serious: No
  Sender: SANOFI AVENTIS
  Company Number: US-SA-SAC20230504000073

PATIENT
  Age: 67 Year
  Sex: Female

DRUGS (1)
  1. DUPIXENT [Suspect]
     Active Substance: DUPILUMAB
     Indication: Asthma
     Dosage: 300 MG, QOW
     Route: 058
     Dates: start: 202304

REACTIONS (7)
  - Asthma [Unknown]
  - Oxygen saturation decreased [Unknown]
  - Cough [Unknown]
  - Wheezing [Unknown]
  - Secretion discharge [Unknown]
  - Therapeutic response shortened [Unknown]
  - Drug ineffective [Unknown]
